FAERS Safety Report 22181801 (Version 2)
Quarter: 2023Q2

REPORT INFORMATION
  Report Type: Spontaneous
  Country: US (occurrence: US)
  Receive Date: 20230406
  Receipt Date: 20230519
  Transmission Date: 20230721
  Serious: No
  Sender: FDA-Public Use
  Company Number: US-LUNDBECK-DKLU3060366

PATIENT
  Age: 57 Year
  Sex: Female
  Weight: 99.79 kg

DRUGS (33)
  1. VYEPTI [Suspect]
     Active Substance: EPTINEZUMAB-JJMR
     Indication: Migraine
     Route: 041
     Dates: start: 20230220
  2. AMLODIPINE BESYLATE [Concomitant]
     Active Substance: AMLODIPINE BESYLATE
     Indication: Product used for unknown indication
     Route: 065
     Dates: start: 20221205
  3. ASPIRIN [Concomitant]
     Active Substance: ASPIRIN
     Indication: Product used for unknown indication
     Route: 048
  4. AZELASTINE HYDROCHLORIDE\FLUTICASONE PROPIONATE [Concomitant]
     Active Substance: AZELASTINE HYDROCHLORIDE\FLUTICASONE PROPIONATE
     Indication: Product used for unknown indication
     Dosage: 137 MCG 50 MCG/SPRAY; SPRAY INTRANASAL ROUTE 2 TIMES EVERY DAY IN EACH NOSTRIL
     Route: 045
     Dates: start: 20220712
  5. BRIMONIDINE TARTRATE [Concomitant]
     Active Substance: BRIMONIDINE TARTRATE
     Indication: Product used for unknown indication
     Dosage: INSTILL 1 DROP BY OPHTHALMIC ROUTE EVERY MORNING INTO BOTH EYES
     Route: 047
     Dates: start: 20221212
  6. CALCIUM 600-VIT D3 [Concomitant]
     Indication: Product used for unknown indication
     Dosage: 600 MG CALCIUM -  5 MCG (200 UNIT)
     Route: 048
     Dates: start: 20080220
  7. CLOTRIMAZOLE/BETAMETHASONE DIP [Concomitant]
     Indication: Product used for unknown indication
     Dosage: 1 PERCENT - 0.05 PERCENT. APPLY TO AFFECTED AREA BID FOR UP TO 14 DAYS.
     Route: 065
     Dates: start: 20211209
  8. COENZYME Q10 [Concomitant]
     Active Substance: DIETARY SUPPLEMENT\UBIDECARENONE
     Indication: Product used for unknown indication
     Route: 048
  9. CYCLOSPORINE [Concomitant]
     Active Substance: CYCLOSPORINE
     Indication: Product used for unknown indication
     Dosage: INSTILL 1 DROP BY OPHTHALMIC ROUTE 2 TIMES EVERY DAY INTO BOTH EYES
     Route: 047
     Dates: start: 20230130
  10. ESTRADIOL [Concomitant]
     Active Substance: ESTRADIOL
     Indication: Product used for unknown indication
     Route: 062
     Dates: start: 20230503
  11. FAMOTIDINE [Concomitant]
     Active Substance: FAMOTIDINE
     Indication: Product used for unknown indication
     Route: 048
     Dates: start: 20220711
  12. FERROUS SULFATE [Concomitant]
     Active Substance: FERROUS SULFATE
     Indication: Product used for unknown indication
     Dosage: 220 MG (44 MG IRON)/5 ML. USE AS DIRECTED- 1 1/2 TSP DAILY
     Route: 065
  13. FISH-FLAX-BORAGE OIL [Concomitant]
     Indication: Product used for unknown indication
     Dosage: 800 MG-200 MG-150 MG-50 MG
     Route: 048
  14. VITAMIN 303 [Concomitant]
     Indication: Product used for unknown indication
     Dosage: TAKE 1 TO 2 TABLETS BY MOUTH EVERY 3 HOURS AS NEEDED
     Route: 048
  15. ACETAMINOPHEN\HYDROCODONE [Concomitant]
     Active Substance: ACETAMINOPHEN\HYDROCODONE
     Indication: Pain
     Dosage: 5 MG-325 MG; TAKE 1 TABLET BY ORAL ROUTE EVERY 8 HOURS AS NEEDED FOR PAIN
     Route: 048
     Dates: start: 20221012
  16. LUMIGAN [Concomitant]
     Active Substance: BIMATOPROST
     Indication: Product used for unknown indication
     Dosage: INSTILL 1 DROP INTO BOTH EYES NIGHTLY
     Route: 047
     Dates: start: 20230504
  17. MAXZIDE [Concomitant]
     Active Substance: HYDROCHLOROTHIAZIDE\TRIAMTERENE
     Indication: Product used for unknown indication
     Dosage: 375 MG-25 MG. TAKE ONE TABLET BY MOUTH DAILY.
     Route: 048
     Dates: start: 20221007
  18. METOPROLOL SUCCINATE [Concomitant]
     Active Substance: METOPROLOL SUCCINATE
     Indication: Product used for unknown indication
     Route: 065
     Dates: start: 20230208
  19. VITAMINS [Concomitant]
     Active Substance: VITAMINS
     Indication: Product used for unknown indication
     Dosage: TAKE ONE TABLET BY MOUTH DAILY
     Route: 048
  20. NAPROXEN [Concomitant]
     Active Substance: NAPROXEN
     Indication: Product used for unknown indication
     Dosage: TAKE ONE TABLET TWICE A DAY
     Route: 065
     Dates: start: 20230501
  21. NATURE-THROID [Concomitant]
     Active Substance: THYROID, PORCINE
     Indication: Product used for unknown indication
     Dosage: TAKE ONE TABLET BY MOUTH DAILY
     Route: 048
  22. PREGABALIN [Concomitant]
     Active Substance: PREGABALIN
     Indication: Product used for unknown indication
     Dosage: TAKE ONE CAPSULE BY MOUTH TWICE PER DAY
     Route: 048
     Dates: start: 20230503
  23. SAVELIA [Concomitant]
     Indication: Product used for unknown indication
     Route: 048
     Dates: start: 20220822
  24. SUMATRIPTAN SUCCINATE [Concomitant]
     Active Substance: SUMATRIPTAN SUCCINATE
     Indication: Product used for unknown indication
     Dosage: USE AS DIRECTED - 1 TAB AT ONSET OF HEADACHE. MAY REPEAT 1 TAB IN 2 HOURS IF HEADACHE PERSISTS., MAX
     Route: 065
     Dates: start: 20210107
  25. TRAMADOL HCL [Concomitant]
     Active Substance: TRAMADOL HYDROCHLORIDE
     Indication: Product used for unknown indication
     Route: 065
  26. TYLENOL WITH CODEINE [Concomitant]
     Active Substance: ACETAMINOPHEN\CODEINE PHOSPHATE
     Indication: Product used for unknown indication
     Dosage: 300 MG - 30 MG. TAKE ONE TO TWO TABLETS BY MOUTH EVERY FOUR TO SIX HOURS AS NEEDED.
     Route: 048
     Dates: start: 20191009
  27. VITAMIN B12 [Concomitant]
     Active Substance: CYANOCOBALAMIN
     Indication: Product used for unknown indication
     Dosage: TAKE ONE TABLET BY MOUTH DAILY
     Route: 048
  28. VITAMIN D3 [Concomitant]
     Active Substance: CHOLECALCIFEROL
     Indication: Product used for unknown indication
     Dosage: TAKE ONE TABLET BY MOUTH DAILY
     Route: 048
  29. XIIDRA [Concomitant]
     Active Substance: LIFITEGRAST
     Indication: Product used for unknown indication
     Dosage: INSTILL 1 DROP BY OPHTHALMIC ROUTE 2 TIMES EVERY DAY INTO BOTH EYES
     Route: 047
     Dates: start: 20230223
  30. ZOLOFT [Concomitant]
     Active Substance: SERTRALINE HYDROCHLORIDE
     Indication: Product used for unknown indication
     Dosage: TAKE ONE TABLET DAILY
     Route: 065
     Dates: start: 20221121
  31. ZYRTEC-D ALLERGY AND CONGESTION [Concomitant]
     Active Substance: CETIRIZINE HYDROCHLORIDE\PSEUDOEPHEDRINE HYDROCHLORIDE
     Indication: Product used for unknown indication
     Dosage: 5 MG - 120 MG. TAKE ONE TABLET BY MOUTH TWICE PER DAY AS NEEDED
     Route: 048
     Dates: start: 20130524
  32. SUMATRIPTAN SUCCINATE [Concomitant]
     Active Substance: SUMATRIPTAN SUCCINATE
     Indication: Product used for unknown indication
     Dosage: 0.6 MG/0.5 ML. USE AS DIRECTED - ADMINISTER ONE INJECTION AT ONSET OF HEADACHE, MAY REPEAT IN 2 HOUR
     Route: 065
     Dates: start: 20210107
  33. GRAPEFRUIT SEED EXTRACT [Concomitant]
     Active Substance: GRAPEFRUIT SEED EXTRACT
     Indication: Product used for unknown indication
     Route: 048

REACTIONS (4)
  - Migraine [Not Recovered/Not Resolved]
  - Oropharyngeal pain [Recovered/Resolved]
  - Nasopharyngitis [Recovered/Resolved]
  - Drug ineffective [Not Recovered/Not Resolved]
